FAERS Safety Report 15557449 (Version 1)
Quarter: 2018Q4

REPORT INFORMATION
  Report Type: Spontaneous
  Country: CD (occurrence: CD)
  Receive Date: 20181026
  Receipt Date: 20181026
  Transmission Date: 20190205
  Serious: Yes (Death)
  Sender: FDA-Public Use
  Company Number: PHHY2018CD117637

PATIENT
  Age: 35 Year
  Sex: Male

DRUGS (2)
  1. GLIVEC [Suspect]
     Active Substance: IMATINIB MESYLATE
     Indication: CHRONIC MYELOID LEUKAEMIA
     Dosage: 400 MG, UNK
     Route: 065
  2. GLIVEC [Suspect]
     Active Substance: IMATINIB MESYLATE
     Dosage: 600 MG, QD
     Route: 048
     Dates: start: 20160922

REACTIONS (4)
  - Chronic myeloid leukaemia [Fatal]
  - Drug resistance [Fatal]
  - Splenomegaly [Fatal]
  - Hyperleukocytosis [Fatal]

NARRATIVE: CASE EVENT DATE: 201712
